FAERS Safety Report 7275883-0 (Version None)
Quarter: 2011Q1

REPORT INFORMATION
  Report Type: 
  Country: None (occurrence: None)
  Receive Date: 20110204
  Receipt Date: 20110125
  Transmission Date: 20110831
  Serious: Yes (Other)
  Sender: FDA-Public Use
  Company Number: A0754335B

PATIENT
  Age: 60 Year
  Sex: Male
  Weight: 73.2 kg

DRUGS (5)
  1. PLACEBO [Suspect]
     Indication: THROMBOCYTOPENIA
     Route: 048
     Dates: start: 20080819, end: 20081029
  2. PEGASYS [Suspect]
     Dosage: 180MCG WEEKLY
     Route: 058
     Dates: start: 20080818, end: 20081020
  3. METHYLPREDNISOLONE [Concomitant]
     Indication: DERMATITIS
  4. COPEGUS [Suspect]
     Route: 048
     Dates: start: 20080818, end: 20081026
  5. ELTROMBOPAG [Suspect]
     Indication: THROMBOCYTOPENIA
     Dosage: 25MG PER DAY
     Route: 048
     Dates: start: 20080725, end: 20080818

REACTIONS (1)
  - CATARACT [None]
